FAERS Safety Report 18322774 (Version 4)
Quarter: 2021Q3

REPORT INFORMATION
  Report Type: Report from Study
  Country: BR (occurrence: BR)
  Receive Date: 20200928
  Receipt Date: 20210701
  Transmission Date: 20211014
  Serious: Yes (Other)
  Sender: FDA-Public Use
  Company Number: BR-UCBSA-2020038058

PATIENT
  Age: 46 Year
  Sex: Female
  Weight: 65 kg

DRUGS (15)
  1. CERTOLIZUMAB PEGOL AD [Suspect]
     Active Substance: CERTOLIZUMAB PEGOL
     Dosage: 400 MILLIGRAM, EV 30 DAYS
     Route: 058
     Dates: start: 2018, end: 20210517
  2. HIXIZINE [Concomitant]
     Active Substance: HYDROXYZINE HYDROCHLORIDE
     Dosage: UNK
     Route: 048
     Dates: start: 202007
  3. METFORMIN [Concomitant]
     Active Substance: METFORMIN HYDROCHLORIDE
     Indication: DIABETES MELLITUS
     Dosage: UNK
     Route: 048
     Dates: start: 2010
  4. PURAN [Concomitant]
     Active Substance: LEVOTHYROXINE SODIUM
     Indication: HYPOTHYROIDISM
     Dosage: 100 MILLIGRAM
     Route: 048
     Dates: start: 2008
  5. ALEKTOS [Concomitant]
     Active Substance: BILASTINE
     Indication: DERMATITIS
     Dosage: 1 TABLET DAILY
     Route: 048
     Dates: start: 202011
  6. GLICAZIDA [Concomitant]
     Active Substance: GLICLAZIDE
     Indication: DIABETES MELLITUS
     Dosage: UNK
     Route: 048
     Dates: start: 2010
  7. CIPROFLOXACIN HCL [Concomitant]
     Active Substance: CIPROFLOXACIN HYDROCHLORIDE
     Indication: URINARY TRACT PAIN
     Dosage: 2 TABLETS
     Route: 048
     Dates: start: 20210507, end: 20210513
  8. LORATADINA [Concomitant]
     Active Substance: LORATADINE
     Indication: HYPERSENSITIVITY
     Dosage: 10 MILLIGRAM, UNK
     Route: 048
     Dates: start: 20200811
  9. COCONUT OIL [Concomitant]
     Active Substance: COCONUT OIL
  10. CERTOLIZUMAB PEGOL AD [Suspect]
     Active Substance: CERTOLIZUMAB PEGOL
     Indication: RHEUMATOID ARTHRITIS
     Dosage: 400 MILLIGRAM, EV 2 WEEKS(QOW)
     Route: 058
     Dates: start: 201801, end: 202011
  11. PREDNISONA [Concomitant]
     Active Substance: PREDNISONE
     Indication: PAIN
     Dosage: 20 MILLIGRAM, UNK
     Route: 048
     Dates: start: 202007
  12. CIPROFLOXACIN HCL [Concomitant]
     Active Substance: CIPROFLOXACIN HYDROCHLORIDE
     Indication: BLADDER PAIN
  13. GLIFAGE [Concomitant]
     Active Substance: METFORMIN HYDROCHLORIDE
     Indication: DIABETES MELLITUS
     Dosage: 4 TABLETS DAILY
     Route: 048
     Dates: start: 2010
  14. SUNFLOWER OIL [Concomitant]
     Active Substance: HERBALS\SUNFLOWER OIL
  15. DIPYRONE [Concomitant]
     Active Substance: DIPYRONE
     Indication: PAIN

REACTIONS (22)
  - Joint swelling [Unknown]
  - Dermatitis [Not Recovered/Not Resolved]
  - Sinusitis [Not Recovered/Not Resolved]
  - Urinary tract pain [Not Recovered/Not Resolved]
  - Pain [Recovering/Resolving]
  - Urinary tract infection [Recovered/Resolved]
  - Therapy interrupted [Unknown]
  - Pneumonia [Recovered/Resolved]
  - Hypersensitivity [Recovering/Resolving]
  - Trismus [Unknown]
  - Joint lock [Unknown]
  - Ear disorder [Not Recovered/Not Resolved]
  - Eye discharge [Not Recovered/Not Resolved]
  - Pyrexia [Recovered/Resolved]
  - Weight increased [Unknown]
  - Jaundice [Recovered/Resolved]
  - Bladder pain [Not Recovered/Not Resolved]
  - Dry skin [Recovering/Resolving]
  - Erythema [Unknown]
  - COVID-19 immunisation [Unknown]
  - Product availability issue [Unknown]
  - Epistaxis [Recovered/Resolved]

NARRATIVE: CASE EVENT DATE: 201801
